FAERS Safety Report 5592696-6 (Version None)
Quarter: 2008Q1

REPORT INFORMATION
  Report Type: 
  Country: None (occurrence: None)
  Receive Date: 20080114
  Receipt Date: 20080103
  Transmission Date: 20080703
  Serious: Yes (Hospitalization, Other)
  Sender: FDA-Public Use
  Company Number: 231447J07USA

PATIENT
  Age: 61 Year
  Sex: Female

DRUGS (3)
  1. REBIF [Suspect]
     Indication: MULTIPLE SCLEROSIS
     Dosage: 44 MCG, 3 IN 1 WEEKS, SUBCUTANEOUS
     Route: 058
     Dates: start: 20070721, end: 20071203
  2. ANTIHYPERTENSIVES                          (ANTIHYPERTENSIVES) [Concomitant]
  3. AMOXICILLIN [Concomitant]

REACTIONS (6)
  - BRAIN NEOPLASM [None]
  - FATIGUE [None]
  - NAUSEA [None]
  - NUCLEAR MAGNETIC RESONANCE IMAGING BRAIN ABNORMAL [None]
  - SEPSIS [None]
  - UNRESPONSIVE TO STIMULI [None]
